FAERS Safety Report 9485032 (Version 1)
Quarter: 2013Q3

REPORT INFORMATION
  Report Type: Spontaneous
  Country: US (occurrence: US)
  Receive Date: 20130828
  Receipt Date: 20130828
  Transmission Date: 20140515
  Serious: No
  Sender: FDA-Public Use
  Company Number: US-ABBOTT-13P-163-1104601-00

PATIENT
  Age: 47 Year
  Sex: Male
  Weight: 72.64 kg

DRUGS (3)
  1. ANDROGEL [Suspect]
     Indication: BLOOD TESTOSTERONE DECREASED
     Dosage: 7 PUMP ACTUATIONS PER DAY
     Dates: end: 201305
  2. ANDROGEL [Suspect]
     Dosage: 5 PUMP ACTUATIONS PER DAY
     Dates: start: 201305
  3. CIALIS [Concomitant]
     Indication: PRODUCT USED FOR UNKNOWN INDICATION

REACTIONS (1)
  - Blood testosterone increased [Not Recovered/Not Resolved]
